FAERS Safety Report 20939496 (Version 1)
Quarter: 2022Q2

REPORT INFORMATION
  Report Type: Spontaneous
  Country: US (occurrence: None)
  Receive Date: 20220608
  Receipt Date: 20220608
  Transmission Date: 20220721
  Serious: Yes (Hospitalization)
  Sender: FDA-Public Use
  Company Number: None

PATIENT
  Age: 34 Year
  Sex: Male

DRUGS (1)
  1. DIMETHYL FUMARATE [Suspect]
     Active Substance: DIMETHYL FUMARATE
     Dosage: FREQUENCY : TWICE A DAY;?
     Route: 048

REACTIONS (10)
  - Flushing [None]
  - Multiple sclerosis relapse [None]
  - Fall [None]
  - Depression [None]
  - Balance disorder [None]
  - Dizziness [None]
  - Ear discomfort [None]
  - Muscular weakness [None]
  - Blood alcohol increased [None]
  - Therapy interrupted [None]

NARRATIVE: CASE EVENT DATE: 20220523
